FAERS Safety Report 10509423 (Version 2)
Quarter: 2014Q4

REPORT INFORMATION
  Report Type: Report from Study
  Country: US (occurrence: US)
  Receive Date: 20141009
  Receipt Date: 20141009
  Transmission Date: 20150528
  Serious: Yes (Death, Hospitalization)
  Sender: FDA-Public Use
  Company Number: US-ACTELION-A-US2013-85189

PATIENT
  Age: 63 Year
  Sex: Male

DRUGS (4)
  1. TRACLEER [Suspect]
     Active Substance: BOSENTAN\BOSENTAN MONOHYDRATE
     Indication: PULMONARY ARTERIAL HYPERTENSION
     Dosage: 125 MG, BID
     Route: 048
     Dates: end: 20140927
  2. SPIRONOLACTONE. [Concomitant]
     Active Substance: SPIRONOLACTONE
     Dosage: 25 MG, UNK
  3. FUROSEMIDE. [Concomitant]
     Active Substance: FUROSEMIDE
     Dosage: 20 MG, UNK
  4. ADCIRCA [Concomitant]
     Active Substance: TADALAFIL

REACTIONS (7)
  - Cerebrovascular accident [Fatal]
  - Infection [Unknown]
  - Feeling abnormal [Unknown]
  - Peritonitis [Recovering/Resolving]
  - Gastroenteritis staphylococcal [Unknown]
  - Endocarditis staphylococcal [Unknown]
  - Abdominal pain [Recovering/Resolving]

NARRATIVE: CASE EVENT DATE: 20130617
